FAERS Safety Report 7305424-0 (Version None)
Quarter: 2011Q1

REPORT INFORMATION
  Report Type: 
  Country: None (occurrence: None)
  Receive Date: 20110222
  Receipt Date: 20110215
  Transmission Date: 20110831
  Serious: Yes (Other)
  Sender: FDA-Public Use
  Company Number: GB-PFIZER INC-2011035514

PATIENT
  Sex: Female

DRUGS (3)
  1. NICOTINE [Suspect]
     Dosage: 15 MG, UNK
     Route: 062
  2. METHADONE [Concomitant]
     Dosage: UNK
  3. NICOTINE [Suspect]
     Dosage: 3 CARTRIDGES, 1X/DAY
     Route: 055

REACTIONS (3)
  - HAEMOPTYSIS [None]
  - OVERDOSE [None]
  - SOMNOLENCE [None]
